FAERS Safety Report 21789365 (Version 1)
Quarter: 2022Q4

REPORT INFORMATION
  Report Type: Spontaneous
  Country: GB (occurrence: GB)
  Receive Date: 20221228
  Receipt Date: 20221228
  Transmission Date: 20230112
  Serious: Yes (Other)
  Sender: FDA-Public Use
  Company Number: None

PATIENT
  Age: 69 Year
  Sex: Female
  Weight: 81 kg

DRUGS (6)
  1. DOXYCYCLINE [Suspect]
     Active Substance: DOXYCYCLINE
     Indication: Ill-defined disorder
     Dosage: UNK
     Route: 048
     Dates: start: 20221221
  2. COCODAMOL [Concomitant]
     Active Substance: ACETAMINOPHEN\CODEINE PHOSPHATE
     Indication: Ill-defined disorder
     Dosage: UNK, 4X/DAY (1 OR 2 DF)
     Dates: start: 20220118
  3. DOXYCYCLINE [Concomitant]
     Active Substance: DOXYCYCLINE
     Indication: Ill-defined disorder
     Dosage: 2 DF, SINGLE (TWO NOW)
     Dates: start: 20221219
  4. DOXYCYCLINE [Concomitant]
     Active Substance: DOXYCYCLINE
     Dosage: 1 DF, DAILY (THEN ONE DAILY)
     Dates: start: 20221219
  5. ACETAMINOPHEN [Concomitant]
     Active Substance: ACETAMINOPHEN
     Indication: Ill-defined disorder
     Dosage: UNK, 4X/DAY (1 OR 2 DF)
     Dates: start: 20220923, end: 20221023
  6. VENTOLIN [Concomitant]
     Active Substance: ALBUTEROL SULFATE
     Indication: Ill-defined disorder
     Dosage: UNK, AS NEEDED (INHALE 2 DOSES AS NEEDED)
     Dates: start: 20220118

REACTIONS (4)
  - Mouth ulceration [Recovering/Resolving]
  - Blister [Unknown]
  - Oral mucosal blistering [Unknown]
  - Pain [Unknown]

NARRATIVE: CASE EVENT DATE: 20221221
